FAERS Safety Report 24447852 (Version 6)
Quarter: 2025Q2

REPORT INFORMATION
  Report Type: Spontaneous
  Country: US (occurrence: US)
  Receive Date: 20241016
  Receipt Date: 20250408
  Transmission Date: 20250716
  Serious: No
  Sender: SANOFI AVENTIS
  Company Number: US-SA-2024SA293887

PATIENT
  Age: 66 Year
  Sex: Female

DRUGS (2)
  1. DUPIXENT [Suspect]
     Active Substance: DUPILUMAB
     Indication: Eczema
     Dosage: 300 MG, QOW
     Route: 058
  2. DUPIXENT [Suspect]
     Active Substance: DUPILUMAB
     Indication: Dermatitis atopic

REACTIONS (8)
  - Injection site haemorrhage [Unknown]
  - Dry skin [Not Recovered/Not Resolved]
  - Rebound eczema [Unknown]
  - Skin exfoliation [Not Recovered/Not Resolved]
  - Pruritus [Recovering/Resolving]
  - Needle issue [Unknown]
  - Rash [Not Recovered/Not Resolved]
  - Product dose omission issue [Unknown]

NARRATIVE: CASE EVENT DATE: 20240925
